FAERS Safety Report 10190443 (Version 1)
Quarter: 2014Q2

REPORT INFORMATION
  Report Type: Spontaneous
  Country: US (occurrence: US)
  Receive Date: 20140522
  Receipt Date: 20140522
  Transmission Date: 20141212
  Serious: No
  Sender: FDA-Public Use
  Company Number: US-B.I. PHARMACEUTICALS,INC./RIDGEFIELD-2014-BI-21011BP

PATIENT
  Age: 63 Year
  Sex: Male
  Weight: 84 kg

DRUGS (2)
  1. ZANTAC 150 (RANITIDINE HYDROCHLORIDE) [Suspect]
     Indication: ULCER HAEMORRHAGE
     Dosage: 300 MG
     Route: 048
     Dates: start: 20140412
  2. PANTOPRAZOLE [Concomitant]
     Dosage: 40 MG
     Route: 048

REACTIONS (2)
  - Overdose [Unknown]
  - Off label use [Unknown]
